FAERS Safety Report 6949641-8 (Version None)
Quarter: 2010Q3

REPORT INFORMATION
  Report Type: 
  Country: None (occurrence: None)
  Receive Date: 20100828
  Receipt Date: 20100127
  Transmission Date: 20110219
  Serious: No
  Sender: FDA-Public Use
  Company Number: US-ABBOTT-10P-163-0618084-00

PATIENT
  Sex: Male

DRUGS (8)
  1. NIASPAN [Suspect]
     Indication: HIGH DENSITY LIPOPROTEIN DECREASED
     Dosage: TWICE DAILY IN AM AND PM
     Route: 048
     Dates: start: 20091101, end: 20100101
  2. NIASPAN [Suspect]
     Dosage: DAILY AT HOUR OF SLEEP
     Dates: start: 20100101
  3. PRISTIQ [Concomitant]
     Indication: DEPRESSION
  4. UROXATRAL [Concomitant]
     Indication: PROSTATOMEGALY
  5. VALTREX [Concomitant]
     Indication: HERPES ZOSTER
  6. VALTREX [Concomitant]
     Indication: PROPHYLAXIS
  7. OMEGA 3-6-9 [Concomitant]
     Indication: PRODUCT USED FOR UNKNOWN INDICATION
  8. MULTI-VITAMIN [Concomitant]
     Dosage: DAILY

REACTIONS (2)
  - FLUSHING [None]
  - GASTROOESOPHAGEAL REFLUX DISEASE [None]
